FAERS Safety Report 9444079 (Version 2)
Quarter: 2013Q3

REPORT INFORMATION
  Report Type: Spontaneous
  Country: DE (occurrence: DE)
  Receive Date: 20130807
  Receipt Date: 20130822
  Transmission Date: 20140515
  Serious: Yes (Other)
  Sender: FDA-Public Use
  Company Number: DE-RANBAXY-2013RR-71794

PATIENT
  Age: 1 Day
  Sex: Male

DRUGS (1)
  1. SERTRALIN [Suspect]
     Indication: DEPRESSION
     Dosage: 50 MG, QD (25MG/DAY IN THE FIRST 2 WEEKS, SINCE 26-JUN-2008 50MG/DAY)
     Route: 063
     Dates: start: 20080612, end: 20080701

REACTIONS (2)
  - Restlessness [Recovered/Resolved]
  - Frequent bowel movements [Unknown]
